FAERS Safety Report 15460319 (Version 2)
Quarter: 2018Q4

REPORT INFORMATION
  Report Type: Spontaneous
  Country: US (occurrence: US)
  Receive Date: 20181003
  Receipt Date: 20181012
  Transmission Date: 20190204
  Serious: No
  Sender: FDA-Public Use
  Company Number: US-TEVA-2018-US-959923

PATIENT
  Sex: Female

DRUGS (1)
  1. NICOTINE GUM [Suspect]
     Active Substance: NICOTINE
     Indication: EX-TOBACCO USER
     Dosage: 2-3 A DAY AND STARTED 6-7 WEEKS AGO
     Route: 048

REACTIONS (6)
  - Oropharyngeal pain [Recovering/Resolving]
  - Product taste abnormal [Unknown]
  - Oral mucosal blistering [Recovering/Resolving]
  - Throat irritation [Unknown]
  - Oral mucosal eruption [Unknown]
  - Pharyngitis [Recovering/Resolving]
